FAERS Safety Report 5856389-X (Version None)
Quarter: 2008Q3

REPORT INFORMATION
  Report Type: 
  Country: None (occurrence: None)
  Receive Date: 20080825
  Receipt Date: 20080825
  Transmission Date: 20090109
  Serious: Yes (Other)
  Sender: FDA-Public Use
  Company Number: A0670613A

PATIENT
  Age: 66 Year
  Sex: Female

DRUGS (1)
  1. ALLI [Suspect]
     Indication: WEIGHT LOSS DIET
     Route: 048
     Dates: start: 20070616

REACTIONS (39)
  - ABDOMINAL DISTENSION [None]
  - ABDOMINAL PAIN UPPER [None]
  - ADVERSE EVENT [None]
  - ANOREXIA [None]
  - ASTHENIA [None]
  - BUNION [None]
  - CATARACT [None]
  - DIZZINESS [None]
  - DRUG INEFFECTIVE [None]
  - EXOSTOSIS [None]
  - EYE DISORDER [None]
  - EYE PAIN [None]
  - FAECAL INCONTINENCE [None]
  - FATIGUE [None]
  - FEAR [None]
  - FLATULENCE [None]
  - FOOD CRAVING [None]
  - GASTROINTESTINAL DISORDER [None]
  - HEADACHE [None]
  - HYPERPHAGIA [None]
  - HYPOAESTHESIA [None]
  - INCISION SITE HAEMORRHAGE [None]
  - MALAISE [None]
  - MUSCLE SPASMS [None]
  - MUSCULOSKELETAL PAIN [None]
  - MYALGIA [None]
  - NAUSEA [None]
  - NECK PAIN [None]
  - NERVE COMPRESSION [None]
  - OBSESSIVE THOUGHTS [None]
  - PAIN IN EXTREMITY [None]
  - POOR QUALITY SLEEP [None]
  - RECTAL DISCHARGE [None]
  - SEASONAL ALLERGY [None]
  - SINUS HEADACHE [None]
  - SINUSITIS [None]
  - VISUAL IMPAIRMENT [None]
  - WEIGHT FLUCTUATION [None]
  - WEIGHT INCREASED [None]
